FAERS Safety Report 9426268 (Version 3)
Quarter: 2013Q3

REPORT INFORMATION
  Report Type: Report from Study
  Country: CA (occurrence: CA)
  Receive Date: 20130730
  Receipt Date: 20130905
  Transmission Date: 20140515
  Serious: Yes (Other)
  Sender: FDA-Public Use
  Company Number: CA-ROCHE-1253804

PATIENT
  Age: 66 Year
  Sex: Female
  Weight: 74.8 kg

DRUGS (13)
  1. RITUXAN [Suspect]
     Indication: RHEUMATOID ARTHRITIS
     Route: 042
     Dates: start: 2011
  2. PREDNISONE [Concomitant]
  3. OMEPRAZOLE [Concomitant]
  4. SYNTHROID [Concomitant]
  5. METHOTREXATE [Concomitant]
  6. FOLIC ACID [Concomitant]
  7. HYDROXYCHLOROQUINE [Concomitant]
  8. NAPROXEN [Concomitant]
  9. TYLENOL/CODEINE [Concomitant]
  10. TEMAZEPAM [Concomitant]
  11. OMEGA 3-6-9 [Concomitant]
  12. VITAMIN C [Concomitant]
  13. VITAMIN B12 [Concomitant]

REACTIONS (7)
  - Hernia [Unknown]
  - Rheumatoid arthritis [Not Recovered/Not Resolved]
  - Hand deformity [Not Recovered/Not Resolved]
  - Night sweats [Not Recovered/Not Resolved]
  - Infusion related reaction [Recovered/Resolved]
  - Hypotension [Unknown]
  - Chest discomfort [Unknown]
